FAERS Safety Report 19357682 (Version 1)
Quarter: 2021Q2

REPORT INFORMATION
  Report Type: Report from Study
  Country: CO (occurrence: CO)
  Receive Date: 20210601
  Receipt Date: 20210601
  Transmission Date: 20210717
  Serious: Yes (Other)
  Sender: FDA-Public Use
  Company Number: NVSC2021CO100966

PATIENT
  Sex: Male
  Weight: 80 kg

DRUGS (3)
  1. SYMBICORT [Concomitant]
     Active Substance: BUDESONIDE\FORMOTEROL FUMARATE DIHYDRATE
     Indication: ASTHMA
     Dosage: UNK (1 PUFF), Q12H
     Route: 055
     Dates: start: 2010
  2. XOLAIR [Suspect]
     Active Substance: OMALIZUMAB
     Indication: ASTHMA
     Dosage: 900 MG (3 INJECTIONS EVERY 15 DAYS)
     Route: 058
  3. MONTELUKAST [Suspect]
     Active Substance: MONTELUKAST SODIUM
     Indication: ASTHMA
     Dosage: 1 PUFF, UNK
     Route: 055
     Dates: start: 2010

REACTIONS (6)
  - Incorrect dose administered [Unknown]
  - Diabetes mellitus [Unknown]
  - Dizziness [Unknown]
  - Asthmatic crisis [Unknown]
  - Cholelithiasis [Unknown]
  - Fatigue [Unknown]
